FAERS Safety Report 5674720-5 (Version None)
Quarter: 2008Q1

REPORT INFORMATION
  Report Type: 
  Country: None (occurrence: None)
  Receive Date: 20080319
  Receipt Date: 20080319
  Transmission Date: 20080703
  Serious: Yes (Other)
  Sender: FDA-Public Use
  Company Number: None

PATIENT
  Age: 50 Year
  Sex: Female
  Weight: 63.5036 kg

DRUGS (2)
  1. PROAIR HFA [Suspect]
     Indication: ASTHMA
     Dosage: ONE PUFF EV 4 HOURS AS NEED PO
     Route: 048
     Dates: start: 20070701, end: 20080317
  2. PROAIR HFA [Suspect]
     Indication: WHEEZING
     Dosage: ONE PUFF EV 4 HOURS AS NEED PO
     Route: 048
     Dates: start: 20070701, end: 20080317

REACTIONS (3)
  - APNOEA [None]
  - DRUG INEFFECTIVE [None]
  - PHARMACEUTICAL PRODUCT COMPLAINT [None]
